FAERS Safety Report 23853439 (Version 2)
Quarter: 2024Q2

REPORT INFORMATION
  Report Type: Report from Study
  Country: ES (occurrence: ES)
  Receive Date: 20240514
  Receipt Date: 20240627
  Transmission Date: 20240716
  Serious: Yes (Other)
  Sender: FDA-Public Use
  Company Number: ES-SUN PHARMACEUTICAL INDUSTRIES LTD-2024R1-445672

PATIENT
  Age: 71 Year
  Sex: Male

DRUGS (1)
  1. OXALIPLATIN [Suspect]
     Active Substance: OXALIPLATIN
     Indication: Colon cancer
     Dosage: UNK/10 CYCLES LIFETIME EXPOSURE (PREVIOUS CYCLES)
     Route: 065

REACTIONS (4)
  - Hypoxia [Unknown]
  - Flushing [Unknown]
  - Erythema [Unknown]
  - Pruritus [Unknown]
